FAERS Safety Report 19997257 (Version 1)
Quarter: 2021Q4

REPORT INFORMATION
  Report Type: Report from Study
  Country: None (occurrence: US)
  Receive Date: 20211025
  Receipt Date: 20211025
  Transmission Date: 20220303
  Serious: Yes (Other)
  Sender: FDA-Public Use
  Company Number: US-ABBVIE-21K-163-4132310-00

PATIENT
  Age: 63 Year
  Sex: Female

DRUGS (2)
  1. RINVOQ [Suspect]
     Active Substance: UPADACITINIB
     Indication: Product used for unknown indication
     Route: 048
     Dates: start: 201910, end: 202110
  2. RINVOQ [Suspect]
     Active Substance: UPADACITINIB
     Dosage: ER
     Route: 048
     Dates: start: 202110

REACTIONS (2)
  - Knee arthroplasty [Unknown]
  - Nodule [Recovering/Resolving]

NARRATIVE: CASE EVENT DATE: 20211004
